FAERS Safety Report 22960149 (Version 2)
Quarter: 2023Q4

REPORT INFORMATION
  Report Type: Spontaneous
  Country: US (occurrence: US)
  Receive Date: 20230920
  Receipt Date: 20231031
  Transmission Date: 20240109
  Serious: Yes (Other)
  Sender: FDA-Public Use
  Company Number: US-Vifor (International) Inc.-VIT-2023-06979

PATIENT
  Age: 31 Year
  Sex: Male
  Weight: 141 kg

DRUGS (3)
  1. MIRCERA [Suspect]
     Active Substance: METHOXY POLYETHYLENE GLYCOL-EPOETIN BETA
     Indication: Nephrogenic anaemia
     Dosage: 2 PREVIOUS DOSES OF MIRCERA
     Route: 040
     Dates: start: 20230726, end: 20230809
  2. MIRCERA [Suspect]
     Active Substance: METHOXY POLYETHYLENE GLYCOL-EPOETIN BETA
     Dosage: THIRD INCREASED DOSE OF MIRCERA
     Route: 040
     Dates: start: 20230823, end: 20230823
  3. VENOFER [Suspect]
     Active Substance: IRON SUCROSE
     Indication: End stage renal disease
     Route: 041
     Dates: start: 20230626

REACTIONS (4)
  - Drug hypersensitivity [Recovered/Resolved]
  - Dyspnoea [Recovered/Resolved]
  - Hypotension [Recovered/Resolved]
  - Off label use [Unknown]

NARRATIVE: CASE EVENT DATE: 20230626
